FAERS Safety Report 12772579 (Version 2)
Quarter: 2016Q4

REPORT INFORMATION
  Report Type: Spontaneous
  Country: JP (occurrence: JP)
  Receive Date: 20160922
  Receipt Date: 20161019
  Transmission Date: 20170207
  Serious: Yes (Other)
  Sender: FDA-Public Use
  Company Number: JP-BRISTOL-MYERS SQUIBB COMPANY-BMS-2016-077489

PATIENT
  Age: 37 Year
  Sex: Female

DRUGS (6)
  1. LONASEN [Suspect]
     Active Substance: BLONANSERIN
     Indication: PRODUCT USED FOR UNKNOWN INDICATION
     Dosage: 8 UNK, QD
     Route: 048
  2. ROHYPNOL [Suspect]
     Active Substance: FLUNITRAZEPAM
     Indication: PRODUCT USED FOR UNKNOWN INDICATION
     Dosage: 1 UNK, QD
     Route: 048
  3. SEPAZON [Suspect]
     Active Substance: CLOXAZOLAM
     Indication: PRODUCT USED FOR UNKNOWN INDICATION
     Dosage: 2 UNK, QD
     Route: 048
  4. ABILIFY [Suspect]
     Active Substance: ARIPIPRAZOLE
     Indication: PRODUCT USED FOR UNKNOWN INDICATION
     Dosage: 30 UNK, QD
     Route: 048
  5. FLUNITRAZEPAM [Suspect]
     Active Substance: FLUNITRAZEPAM
     Indication: PRODUCT USED FOR UNKNOWN INDICATION
     Dosage: 2 UNK, QD
     Route: 048
  6. RILYFTER [Suspect]
     Active Substance: CLOTIAZEPAM
     Indication: PRODUCT USED FOR UNKNOWN INDICATION
     Dosage: 5 UNK, QD
     Route: 048

REACTIONS (2)
  - Breast cancer [Unknown]
  - Deep vein thrombosis [Recovered/Resolved]

NARRATIVE: CASE EVENT DATE: 20160913
